FAERS Safety Report 5747839-8 (Version None)
Quarter: 2008Q2

REPORT INFORMATION
  Report Type: 
  Country: None (occurrence: None)
  Receive Date: 20080523
  Receipt Date: 20080521
  Transmission Date: 20081010
  Serious: Yes (Other)
  Sender: FDA-Public Use
  Company Number: US-BRISTOL-MYERS SQUIBB COMPANY-14199822

PATIENT
  Age: 38 Year
  Sex: Female

DRUGS (3)
  1. PACLITAXEL [Suspect]
     Indication: BREAST CANCER
     Dosage: 12 WEEKLY CYCLES OF PACLITAXEL COMPLETED IN WEEK 33 OF GESTATION.
  2. DOXORUBICIN HCL [Suspect]
     Indication: BREAST CANCER
  3. CYCLOPHOSPHAMIDE [Suspect]
     Indication: BREAST CANCER

REACTIONS (3)
  - NORMAL NEWBORN [None]
  - PRE-ECLAMPSIA [None]
  - PREGNANCY [None]
